FAERS Safety Report 5564962-1 (Version None)
Quarter: 2007Q4

REPORT INFORMATION
  Report Type: 
  Country: None (occurrence: None)
  Receive Date: 20071218
  Receipt Date: 20071210
  Transmission Date: 20080405
  Serious: Yes (Hospitalization)
  Sender: FDA-Public Use
  Company Number: B0499780A

PATIENT
  Age: 43 Year
  Sex: Male

DRUGS (9)
  1. CLAMOXYL [Suspect]
     Route: 048
     Dates: start: 20040301, end: 20040401
  2. AUGMENTIN '125' [Suspect]
     Route: 048
     Dates: start: 20040406, end: 20040401
  3. JOSACINE [Suspect]
     Route: 048
     Dates: start: 20040301
  4. ALLOPURINOL [Concomitant]
     Route: 065
     Dates: start: 20020101
  5. SOPROL [Concomitant]
     Route: 065
     Dates: start: 20020101
  6. ASPEGIC 1000 [Concomitant]
     Route: 065
     Dates: start: 20020101
  7. SPECIAFOLDINE [Concomitant]
     Route: 065
     Dates: start: 20020101
  8. CLAFORAN [Concomitant]
     Route: 065
  9. CIFLOX [Concomitant]
     Route: 065

REACTIONS (13)
  - ABDOMINAL PAIN [None]
  - BLOOD ALKALINE PHOSPHATASE INCREASED [None]
  - C-REACTIVE PROTEIN INCREASED [None]
  - GAMMA-GLUTAMYLTRANSFERASE INCREASED [None]
  - LIPASE INCREASED [None]
  - LIVER DISORDER [None]
  - NAUSEA [None]
  - OEDEMATOUS PANCREATITIS [None]
  - PANCREATIC DISORDER [None]
  - PANCREATIC ENZYMES INCREASED [None]
  - PANCREATITIS ACUTE [None]
  - SPLENOMEGALY [None]
  - VOMITING [None]
